FAERS Safety Report 7575456-6 (Version None)
Quarter: 2011Q2

REPORT INFORMATION
  Report Type: 
  Country: None (occurrence: None)
  Receive Date: 20110627
  Receipt Date: 20110621
  Transmission Date: 20111010
  Serious: Yes (Death)
  Sender: FDA-Public Use
  Company Number: US-CELGENEUS-163-21880-11062908

PATIENT
  Age: 86 Year
  Sex: Male

DRUGS (9)
  1. VELCADE [Concomitant]
     Indication: MULTIPLE MYELOMA
     Route: 065
     Dates: start: 20090401, end: 20100301
  2. ASPIRIN [Concomitant]
     Dosage: 81 MILLIGRAM
     Route: 048
  3. VITAMIN D [Concomitant]
     Route: 065
  4. MELPHALAN HYDROCHLORIDE [Concomitant]
     Indication: MULTIPLE MYELOMA
     Route: 065
     Dates: start: 20090201, end: 20110113
  5. REVLIMID [Suspect]
     Indication: MULTIPLE MYELOMA
     Dosage: 5 MILLIGRAM
     Route: 048
     Dates: start: 20110114, end: 20110114
  6. DEXAMETHASONE [Suspect]
     Dosage: 40 MILLIGRAM
     Route: 048
     Dates: start: 20110113, end: 20110115
  7. VELCADE [Concomitant]
     Route: 065
     Dates: start: 20101001, end: 20110101
  8. MORPHINE [Concomitant]
     Route: 065
  9. VICODIN [Concomitant]
     Route: 065

REACTIONS (5)
  - POLYURIA [None]
  - RESTLESSNESS [None]
  - DEATH [None]
  - EPISTAXIS [None]
  - SPEECH DISORDER [None]
